FAERS Safety Report 9628897 (Version 2)
Quarter: 2015Q2

REPORT INFORMATION
  Report Type: Spontaneous
  Country: JP (occurrence: JP)
  Receive Date: 20131017
  Receipt Date: 20150605
  Transmission Date: 20150821
  Serious: Yes (Hospitalization)
  Sender: FDA-Public Use
  Company Number: PHHY2013JP113180

PATIENT
  Age: 10 Year
  Sex: Female

DRUGS (4)
  1. TOPIRAMATE. [Concomitant]
     Active Substance: TOPIRAMATE
     Indication: MYOCLONIC EPILEPSY
     Dosage: 60 MG, QD
     Route: 065
  2. LEVETIRACETAM. [Suspect]
     Active Substance: LEVETIRACETAM
     Indication: MYOCLONIC EPILEPSY
     Dosage: 250 MG, QD
     Route: 065
  3. TOPIRAMATE. [Concomitant]
     Active Substance: TOPIRAMATE
     Indication: TONIC CONVULSION
  4. LEVETIRACETAM. [Suspect]
     Active Substance: LEVETIRACETAM
     Indication: TONIC CONVULSION
     Dosage: 800 MG, QD
     Route: 065

REACTIONS (11)
  - Myoclonic epilepsy [Unknown]
  - Asthenia [Recovered/Resolved]
  - Limb discomfort [Recovered/Resolved]
  - Psychotic disorder [Recovered/Resolved]
  - Pallor [Recovered/Resolved]
  - Blunted affect [Recovered/Resolved]
  - Hyporesponsive to stimuli [Unknown]
  - Stereotypy [Recovered/Resolved]
  - Akinesia [Unknown]
  - Tonic convulsion [Unknown]
  - Hypopnoea [Recovered/Resolved]
